FAERS Safety Report 5672772-X (Version None)
Quarter: 2008Q2

REPORT INFORMATION
  Report Type: 
  Country: None (occurrence: None)
  Receive Date: 20080219
  Receipt Date: 20071203
  Transmission Date: 20081010
  Serious: No
  Sender: FDA-Public Use
  Company Number: TPA2007A01593

PATIENT
  Age: 52 Year
  Sex: Female
  Weight: 51.2565 kg

DRUGS (3)
  1. ROZEREM [Suspect]
     Indication: INSOMNIA
     Dosage: QHS, PER ORAL
     Route: 048
     Dates: start: 20070721, end: 20070821
  2. ROZEREM [Suspect]
     Indication: MIDDLE INSOMNIA
     Dosage: QHS, PER ORAL
     Route: 048
     Dates: start: 20070721, end: 20070821
  3. LUNESTA [Concomitant]

REACTIONS (4)
  - ANXIETY [None]
  - FATIGUE [None]
  - MIDDLE INSOMNIA [None]
  - PALPITATIONS [None]
